FAERS Safety Report 25341803 (Version 1)
Quarter: 2025Q2

REPORT INFORMATION
  Report Type: Report from Study
  Country: BR (occurrence: BR)
  Receive Date: 20250521
  Receipt Date: 20250521
  Transmission Date: 20250717
  Serious: Yes (Disabling, Other)
  Sender: TAKEDA
  Company Number: BR-TAKEDA-2025TUS047029

PATIENT
  Sex: Male

DRUGS (1)
  1. HEMO-8R [Suspect]
     Active Substance: ANTIHEMOPHILIC FACTOR, HUMAN RECOMBINANT
     Indication: Haemophilia

REACTIONS (5)
  - Mobility decreased [Recovered/Resolved]
  - Haemarthrosis [Unknown]
  - Pain [Unknown]
  - Lower limb fracture [Unknown]
  - Peripheral swelling [Unknown]
